FAERS Safety Report 14926456 (Version 3)
Quarter: 2018Q2

REPORT INFORMATION
  Report Type: Report from Study
  Country: DE (occurrence: DE)
  Receive Date: 20180523
  Receipt Date: 20180619
  Transmission Date: 20180711
  Serious: Yes (Hospitalization)
  Sender: FDA-Public Use
  Company Number: DE-ROCHE-2127750

PATIENT
  Age: 65 Year
  Sex: Female
  Weight: 79 kg

DRUGS (5)
  1. TRASTUZUMAB. [Suspect]
     Active Substance: TRASTUZUMAB
     Indication: HER-2 POSITIVE BREAST CANCER
     Dosage: MOST RECENT DOSE PRIOR TO SAE ONSET: 25/JAN/2018
     Route: 042
     Dates: start: 20171123
  2. PERTUZUMAB. [Suspect]
     Active Substance: PERTUZUMAB
     Indication: HER-2 POSITIVE BREAST CANCER
     Dosage: MOST RECENT DOSE PRIOR TO THE SAE ONSET:  25/JAN/2018
     Route: 042
     Dates: start: 20171123
  3. CYCLOPHOSPHAMID [Suspect]
     Active Substance: CYCLOPHOSPHAMIDE
     Indication: HER-2 POSITIVE BREAST CANCER
     Dosage: MOST RECENT DOSE PRIOR TO THE SAE 09/APR/2018
     Route: 042
     Dates: start: 20180409, end: 20180509
  4. PACLITAXEL. [Suspect]
     Active Substance: PACLITAXEL
     Indication: HER-2 POSITIVE BREAST CANCER
     Dosage: LAST DOSE PRIOR TO THE SAE 08/FEB/2018
     Route: 042
     Dates: start: 20171123
  5. EPIRUBICIN [Suspect]
     Active Substance: EPIRUBICIN
     Indication: HER-2 POSITIVE BREAST CANCER
     Dosage: MOST RECENT DOSE PRIOR TO THE SAE 09/APR/2018
     Route: 042
     Dates: start: 20180409, end: 20180509

REACTIONS (1)
  - Thrombosis [Recovered/Resolved]

NARRATIVE: CASE EVENT DATE: 20180417
